FAERS Safety Report 6355109-2 (Version None)
Quarter: 2009Q3

REPORT INFORMATION
  Report Type: 
  Country: None (occurrence: None)
  Receive Date: 20090909
  Receipt Date: 20090827
  Transmission Date: 20100115
  Serious: Yes (Hospitalization)
  Sender: FDA-Public Use
  Company Number: 370925

PATIENT
  Sex: Female

DRUGS (1)
  1. CYTARABINE [Suspect]
     Indication: MYELOID LEUKAEMIA
     Dosage: 82 MG

REACTIONS (1)
  - CONTINUOUS HAEMODIAFILTRATION [None]
